FAERS Safety Report 9613377 (Version 2)
Quarter: 2013Q4

REPORT INFORMATION
  Report Type: Spontaneous
  Country: IT (occurrence: None)
  Receive Date: 20131008
  Receipt Date: 20131022
  Transmission Date: 20140711
  Serious: Yes (Hospitalization)
  Sender: FDA-Public Use
  Company Number: 1930527

PATIENT
  Sex: Male

DRUGS (1)
  1. METHOTREXATE [Suspect]
     Indication: PRODUCT USED FOR UNKNOWN INDICATION

REACTIONS (4)
  - Duodenal ulcer [None]
  - Haematemesis [None]
  - Melaena [None]
  - Oesophagitis [None]
